FAERS Safety Report 9524587 (Version 1)
Quarter: 2013Q1

REPORT INFORMATION
  Report Type: Spontaneous
  Country: US (occurrence: None)
  Receive Date: 20130305
  Receipt Date: 20130305
  Transmission Date: 20140127
  Serious: Yes (Other)
  Sender: FDA-Public Use
  Company Number: 163-21880-12020623

PATIENT
  Age: 57 Year
  Sex: Male

DRUGS (3)
  1. REVLIMID [Suspect]
     Indication: PLASMA CELL MYELOMA
     Dosage: 15 MG, CAPSULE DAILY X 21 DAYS, PO
     Route: 048
     Dates: start: 20110108
  2. DEXAMETHASONE [Concomitant]
  3. VELCADE (BORTEZOMIB) [Concomitant]

REACTIONS (2)
  - Swelling face [None]
  - Rash pruritic [None]
